FAERS Safety Report 10674754 (Version 1)
Quarter: 2014Q4

REPORT INFORMATION
  Report Type: Spontaneous
  Country: US (occurrence: None)
  Receive Date: 20141210
  Receipt Date: 20141210
  Transmission Date: 20150529
  Serious: Yes (Hospitalization)
  Sender: FDA-Public Use
  Company Number: 20140312CINRY5955

PATIENT
  Age: 27 Year
  Sex: Female

DRUGS (2)
  1. CINRYZE [Suspect]
     Active Substance: HUMAN C1-ESTERASE INHIBITOR
     Indication: ANGIOEDEMA
     Dosage: 1000 UNITS MON + WED 1500 UNITS FRIDAYS
     Route: 042
     Dates: start: 20130520
  2. CINRYZE [Suspect]
     Active Substance: HUMAN C1-ESTERASE INHIBITOR
     Indication: PROPHYLAXIS
     Dosage: 1000 UNITS MON + WED 1500 UNITS FRIDAYS
     Route: 042
     Dates: start: 20130520

REACTIONS (3)
  - Inappropriate schedule of drug administration [None]
  - Hereditary angioedema [None]
  - Therapy change [None]
